FAERS Safety Report 15866276 (Version 1)
Quarter: 2019Q1

REPORT INFORMATION
  Report Type: Spontaneous
  Country: US (occurrence: US)
  Receive Date: 20190102
  Receipt Date: 20190102
  Transmission Date: 20190417
  Serious: No
  Sender: FDA-Public Use
  Company Number: None

PATIENT
  Age: 45 Year
  Sex: Female

DRUGS (1)
  1. EXTAVIA [Suspect]
     Active Substance: INTERFERON BETA-1B
     Dates: start: 201810

REACTIONS (3)
  - Injection site erythema [None]
  - Body fat disorder [None]
  - Injection site pain [None]

NARRATIVE: CASE EVENT DATE: 20181016
